FAERS Safety Report 10971625 (Version 1)
Quarter: 2015Q1

REPORT INFORMATION
  Report Type: Spontaneous
  Country: US (occurrence: None)
  Receive Date: 20150330
  Receipt Date: 20150330
  Transmission Date: 20150721
  Serious: No
  Sender: FDA-Public Use
  Company Number: None

PATIENT
  Age: 34 Year
  Sex: Male
  Weight: 72.58 kg

DRUGS (1)
  1. RECTIV [Suspect]
     Active Substance: NITROGLYCERIN
     Indication: HAEMORRHOIDS
     Dosage: 1 INCH
     Route: 054
     Dates: start: 20150319, end: 20150322

REACTIONS (7)
  - Bruxism [None]
  - Arthralgia [None]
  - Fatigue [None]
  - Mood swings [None]
  - Dizziness [None]
  - Lymphoedema [None]
  - Decreased appetite [None]

NARRATIVE: CASE EVENT DATE: 20150319
